FAERS Safety Report 6816248-2 (Version None)
Quarter: 2010Q3

REPORT INFORMATION
  Report Type: 
  Country: None (occurrence: None)
  Receive Date: 20100702
  Receipt Date: 20100702
  Transmission Date: 20110219
  Serious: Yes (Death, Life-Threatening)
  Sender: FDA-Public Use
  Company Number: None

PATIENT
  Sex: Male
  Weight: 84.3 kg

DRUGS (31)
  1. VASOPRESSIN [Suspect]
     Dosage: 2 UNITS PER MINUTE IV DRIP
     Route: 041
     Dates: start: 20100507, end: 20100509
  2. FENTANYL+BUPIVACAINE [Concomitant]
  3. ONDANSETRON [Concomitant]
  4. PIPERACILLIN AND TAZOBACTAM [Concomitant]
  5. POTASSIUM IV [Concomitant]
  6. MORPHINE [Concomitant]
  7. METOCLOPRAMIDE [Concomitant]
  8. MAGNESIUM SULFATE [Concomitant]
  9. LORAZEPAM [Concomitant]
  10. LEVOFLOXACIN [Concomitant]
  11. IPRATROPRIUM/ALBUTEROL [Concomitant]
  12. INSULIN [Concomitant]
  13. HYDROMORPHONE [Concomitant]
  14. HYDROCORTISONE IV [Concomitant]
  15. HETASTARCH 6% IN 0.9% SODIUM CHLORIDE IN PLASTIC CONTAINER [Concomitant]
  16. HEPARIN [Concomitant]
  17. FENTANYL [Concomitant]
  18. FAMOTIDINE [Concomitant]
  19. ETOMIDATE [Concomitant]
  20. DEXAMETHASONE [Concomitant]
  21. VASOPRESSIN [Concomitant]
  22. EPINEPHRINE [Concomitant]
  23. PHENYLEPHRINE [Concomitant]
  24. NOREPINEPHRINE [Concomitant]
  25. D50W [Concomitant]
  26. CEFUROXIME [Concomitant]
  27. CALCIUM GLUCONATE [Concomitant]
  28. CALCIUM CHLORIDE [Concomitant]
  29. BUPIVACAINE MPF [Concomitant]
  30. ALBUMIN (HUMAN) [Concomitant]
  31. VANCOMYCIN [Concomitant]

REACTIONS (3)
  - BLOOD PRESSURE DECREASED [None]
  - INTESTINAL ISCHAEMIA [None]
  - INTRA-ABDOMINAL HAEMATOMA [None]
